FAERS Safety Report 9727996 (Version 1)
Quarter: 2013Q4

REPORT INFORMATION
  Report Type: Spontaneous
  Country: TH (occurrence: None)
  Receive Date: 20131127
  Receipt Date: 20131127
  Transmission Date: 20140711
  Serious: Yes (Other)
  Sender: FDA-Public Use
  Company Number: 2013TH00766

PATIENT
  Age: 32 Year
  Sex: Male

DRUGS (2)
  1. CARBOPLATIN [Suspect]
     Indication: RENAL CANCER STAGE II
  2. CARBOPLATIN [Suspect]
     Indication: RENAL CANCER STAGE II

REACTIONS (1)
  - Renal failure acute [None]
